FAERS Safety Report 9702482 (Version 1)
Quarter: 2013Q4

REPORT INFORMATION
  Report Type: Spontaneous
  Country: US (occurrence: US)
  Receive Date: 20131121
  Receipt Date: 20131121
  Transmission Date: 20140711
  Serious: Yes (Hospitalization)
  Sender: FDA-Public Use
  Company Number: US-ABBVIE-13P-163-1169602-00

PATIENT
  Age: 22 Year
  Sex: Female
  Weight: 46.31 kg

DRUGS (1)
  1. HUMIRA [Suspect]
     Indication: COLITIS ULCERATIVE
     Dates: start: 2005

REACTIONS (3)
  - Haemorrhage [Recovering/Resolving]
  - Hypophagia [Recovering/Resolving]
  - Colitis ulcerative [Recovered/Resolved]
